FAERS Safety Report 7469342-X (Version None)
Quarter: 2011Q2

REPORT INFORMATION
  Report Type: 
  Country: None (occurrence: None)
  Receive Date: 20110429
  Receipt Date: 20110415
  Transmission Date: 20111010
  Serious: Yes (Hospitalization)
  Sender: FDA-Public Use
  Company Number: 031394

PATIENT
  Sex: Male
  Weight: 20.7 kg

DRUGS (4)
  1. LAMOTRIGINE [Concomitant]
  2. LACOSAMIDE [Suspect]
     Indication: PARTIAL SEIZURES
     Dosage: ORAL
     Route: 048
  3. KEPPRA [Concomitant]
  4. TOPAMAX [Concomitant]

REACTIONS (2)
  - DYSPNOEA [None]
  - PYREXIA [None]
